FAERS Safety Report 10593089 (Version 1)
Quarter: 2014Q4

REPORT INFORMATION
  Report Type: Spontaneous
  Country: US (occurrence: US)
  Receive Date: 20141119
  Receipt Date: 20141119
  Transmission Date: 20150529
  Serious: No
  Sender: FDA-Public Use
  Company Number: US-JNJFOC-20141106669

PATIENT
  Sex: Male
  Weight: 102.06 kg

DRUGS (5)
  1. DURAGESIC [Suspect]
     Active Substance: FENTANYL
     Indication: BACK PAIN
     Route: 062
     Dates: start: 201406
  2. HYDROCODONE [Concomitant]
     Active Substance: HYDROCODONE
     Indication: BREAKTHROUGH PAIN
     Dosage: 10/325 MG EVERY 4-6 HOURS
     Route: 048
  3. DURAGESIC [Suspect]
     Active Substance: FENTANYL
     Indication: BACK PAIN
     Route: 062
     Dates: start: 201410
  4. DURAGESIC [Suspect]
     Active Substance: FENTANYL
     Indication: BACK PAIN
     Route: 062
     Dates: start: 201402, end: 201406
  5. GABAPENTIN. [Concomitant]
     Active Substance: GABAPENTIN
     Indication: NEURALGIA
     Route: 048

REACTIONS (10)
  - Tremor [Not Recovered/Not Resolved]
  - Incorrect drug administration duration [Unknown]
  - Drug prescribing error [Unknown]
  - Inadequate analgesia [Recovered/Resolved]
  - Nausea [Not Recovered/Not Resolved]
  - Product quality issue [Not Recovered/Not Resolved]
  - Back pain [Not Recovered/Not Resolved]
  - Disorientation [Not Recovered/Not Resolved]
  - Drug withdrawal syndrome [Unknown]
  - Abdominal discomfort [Not Recovered/Not Resolved]

NARRATIVE: CASE EVENT DATE: 201402
